FAERS Safety Report 15090737 (Version 1)
Quarter: 2018Q2

REPORT INFORMATION
  Report Type: Spontaneous
  Country: US (occurrence: US)
  Receive Date: 20180629
  Receipt Date: 20180629
  Transmission Date: 20180711
  Serious: Yes (Other)
  Sender: FDA-Public Use
  Company Number: US-HERITAGE PHARMACEUTICALS-2018HTG00147

PATIENT
  Age: 66 Year
  Sex: Female

DRUGS (1)
  1. AMANTADINE HYDROCHLORIDE. [Suspect]
     Active Substance: AMANTADINE HYDROCHLORIDE
     Indication: CRANIOCEREBRAL INJURY
     Dosage: UNK, 2X/DAY
     Route: 065

REACTIONS (2)
  - Corneal oedema [Recovering/Resolving]
  - Blindness unilateral [Recovering/Resolving]
